FAERS Safety Report 7723948-9 (Version None)
Quarter: 2011Q3

REPORT INFORMATION
  Report Type: 
  Country: None (occurrence: None)
  Receive Date: 20110901
  Receipt Date: 20110818
  Transmission Date: 20111222
  Serious: Yes (Hospitalization, Other)
  Sender: FDA-Public Use
  Company Number: US-ELI_LILLY_AND_COMPANY-US201108006627

PATIENT
  Sex: Female

DRUGS (7)
  1. FORTEO [Suspect]
     Dosage: 20 UG, QD
     Dates: start: 20110814
  2. PROAIR HFA [Concomitant]
     Route: 055
  3. ADVAIR DISKUS 100/50 [Concomitant]
     Route: 055
  4. VITAMIN D [Concomitant]
  5. CALCIUM CARBONATE [Concomitant]
  6. SPIRIVA [Concomitant]
     Route: 055
  7. FORTEO [Suspect]
     Indication: OSTEOPOROSIS
     Dosage: 20 UG, QD
     Dates: end: 20110809

REACTIONS (2)
  - LUNG INFECTION [None]
  - CHRONIC OBSTRUCTIVE PULMONARY DISEASE [None]
